FAERS Safety Report 9597645 (Version 2)
Quarter: 2016Q1

REPORT INFORMATION
  Report Type: Spontaneous
  Country: GR (occurrence: GR)
  Receive Date: 20131004
  Receipt Date: 20160226
  Transmission Date: 20160526
  Serious: Yes (Other)
  Sender: FDA-Public Use
  Company Number: GR-BRISTOL-MYERS SQUIBB COMPANY-19489491

PATIENT
  Age: 22 Year
  Sex: Male

DRUGS (7)
  1. BRIPLATIN [Suspect]
     Active Substance: CISPLATIN
     Indication: SEMINOMA
     Dosage: BETWEEN NOV 2009 AND JAN 2010
     Route: 065
  2. IFOSFAMIDE. [Suspect]
     Active Substance: IFOSFAMIDE
     Indication: SEMINOMA
     Dosage: BETWEEN NOV 2009 AND JAN 2010
     Route: 065
  3. BLEOMYCIN SULFATE [Suspect]
     Active Substance: BLEOMYCIN SULFATE
     Indication: PRODUCT USED FOR UNKNOWN INDICATION
     Dosage: BETWEEN MAY AND AUGUST 2009
     Route: 065
     Dates: start: 2009
  4. CARBOPLATIN. [Suspect]
     Active Substance: CARBOPLATIN
     Indication: SEMINOMA
     Dosage: BETWEEN MAY AND AUGUST 2009  1DF:AUC6 MG/ML
     Route: 065
     Dates: start: 2009
  5. PACLITAXEL. [Suspect]
     Active Substance: PACLITAXEL
     Indication: SEMINOMA
     Dosage: BETWEEN NOV 2009 AND JAN 2010
     Route: 065
  6. VEPESID [Suspect]
     Active Substance: ETOPOSIDE
     Indication: SEMINOMA
     Dosage: BETWEEN MAY AND AUGUST 2009  SUP(2)/DAY
     Route: 065
     Dates: start: 2009
  7. CYCLOPHOSPHAMIDE. [Suspect]
     Active Substance: CYCLOPHOSPHAMIDE
     Indication: SEMINOMA
     Dosage: SUP(2)/DAY
     Route: 065

REACTIONS (5)
  - Neutropenia [Recovered/Resolved]
  - Cystitis haemorrhagic [Unknown]
  - Product use issue [Unknown]
  - Thrombocytopenia [Recovered/Resolved]
  - Mucosal inflammation [Unknown]
